FAERS Safety Report 5642041-2 (Version None)
Quarter: 2008Q1

REPORT INFORMATION
  Report Type: 
  Country: None (occurrence: None)
  Receive Date: 20080227
  Receipt Date: 20080215
  Transmission Date: 20080703
  Serious: Yes (Hospitalization)
  Sender: FDA-Public Use
  Company Number: FR-PFIZER INC-2008015628

PATIENT
  Age: 64 Year
  Sex: Male

DRUGS (10)
  1. TRIFLUCAN [Suspect]
     Indication: FEBRILE BONE MARROW APLASIA
     Route: 042
     Dates: start: 20070716, end: 20070725
  2. PROGRAF [Suspect]
     Indication: SKIN GRAFT
     Route: 042
     Dates: start: 20070706, end: 20070801
  3. CARVEDILOL [Suspect]
     Indication: CARDIAC FAILURE
     Route: 048
     Dates: start: 20070718, end: 20070724
  4. TAZOCILLINE [Concomitant]
  5. ACYCLOVIR [Concomitant]
  6. INIPOMP [Concomitant]
  7. DELURSAN [Concomitant]
  8. LOXEN [Concomitant]
  9. CELLCEPT [Concomitant]
     Route: 048
     Dates: start: 20070718
  10. VANCOMYCIN HYDROCHLORIDE [Concomitant]
     Route: 042

REACTIONS (1)
  - HAEMOLYTIC ANAEMIA [None]
